FAERS Safety Report 4585618-8 (Version None)
Quarter: 2005Q1

REPORT INFORMATION
  Report Type: 
  Country: None (occurrence: None)
  Receive Date: 20050217
  Receipt Date: 20050208
  Transmission Date: 20050727
  Serious: Yes (Hospitalization)
  Sender: FDA-Public Use
  Company Number: US-JNJFOC-20041206756

PATIENT
  Sex: Male
  Weight: 76.7 kg

DRUGS (27)
  1. DURAGESIC-100 [Suspect]
     Route: 062
     Dates: start: 20040101
  2. TRISENOX [Suspect]
     Indication: MYELODYSPLASTIC SYNDROME
     Route: 042
     Dates: start: 20040405, end: 20040407
  3. MORPHINE [Suspect]
     Indication: PAIN
  4. FENTANYL [Suspect]
     Indication: PAIN
     Dosage: AS NECESSARY
     Route: 049
     Dates: start: 20040101
  5. NITROGLYCERIN [Concomitant]
  6. OMEPRAZOLE [Concomitant]
  7. LOSARTAN POTASSIUM [Concomitant]
  8. NISOLDIPINE [Concomitant]
  9. ZYRTEC [Concomitant]
  10. TRIAMTERENE [Concomitant]
  11. HYDROCHLOROTHIAZIDE [Concomitant]
  12. ZOCOR [Concomitant]
  13. PROPRANOLOL [Concomitant]
  14. CELEBREX [Concomitant]
  15. MULTI-VITAMIN [Concomitant]
  16. MULTI-VITAMIN [Concomitant]
  17. MULTI-VITAMIN [Concomitant]
  18. MULTI-VITAMIN [Concomitant]
  19. MULTI-VITAMIN [Concomitant]
  20. MULTI-VITAMIN [Concomitant]
  21. MULTI-VITAMIN [Concomitant]
  22. MULTI-VITAMIN [Concomitant]
  23. FOLIC ACID [Concomitant]
  24. ASPIRIN [Concomitant]
  25. CELEXA [Concomitant]
  26. CARBIDOPA AND LEVODOPA [Concomitant]
     Indication: TREMOR
     Dosage: .50/200 QID
  27. NEURONTIN [Concomitant]

REACTIONS (5)
  - CONFUSIONAL STATE [None]
  - DYSARTHRIA [None]
  - EXTRAPYRAMIDAL DISORDER [None]
  - FIBULA FRACTURE [None]
  - TRANSIENT ISCHAEMIC ATTACK [None]
